FAERS Safety Report 12365510 (Version 3)
Quarter: 2016Q4

REPORT INFORMATION
  Report Type: Spontaneous
  Country: US (occurrence: US)
  Receive Date: 20160513
  Receipt Date: 20161116
  Transmission Date: 20170207
  Serious: No
  Sender: FDA-Public Use
  Company Number: US-GLAXOSMITHKLINE-US2016060293

PATIENT
  Sex: Female

DRUGS (1)
  1. BREO ELLIPTA [Suspect]
     Active Substance: FLUTICASONE FUROATE\VILANTEROL TRIFENATATE
     Indication: DYSPNOEA
     Dosage: 1 PUFF(S), QD
     Route: 055
     Dates: start: 20160325, end: 20160425

REACTIONS (7)
  - Hypotonia [Unknown]
  - Physical product label issue [Unknown]
  - Therapeutic response unexpected [Unknown]
  - Urticaria [Recovering/Resolving]
  - Cough [Unknown]
  - Drug ineffective [Unknown]
  - Feeling abnormal [Unknown]
